FAERS Safety Report 23477254 (Version 1)
Quarter: 2024Q1

REPORT INFORMATION
  Report Type: Report from Study
  Country: US (occurrence: US)
  Receive Date: 20240204
  Receipt Date: 20240204
  Transmission Date: 20240410
  Serious: No
  Sender: FDA-Public Use
  Company Number: US-EXELIXIS-CABO-23066605

PATIENT
  Age: 70 Year
  Sex: Male
  Weight: 70.658 kg

DRUGS (1)
  1. CABOMETYX [Suspect]
     Active Substance: CABOZANTINIB S-MALATE
     Indication: Bladder cancer
     Dosage: 40 MG, QD
     Route: 048
     Dates: start: 20230705

REACTIONS (4)
  - Blood pressure increased [Unknown]
  - Stomatitis [Unknown]
  - Abdominal discomfort [Unknown]
  - Off label use [Unknown]

NARRATIVE: CASE EVENT DATE: 20230901
